FAERS Safety Report 15779199 (Version 2)
Quarter: 2019Q1

REPORT INFORMATION
  Report Type: Spontaneous
  Country: US (occurrence: US)
  Receive Date: 20190101
  Receipt Date: 20190124
  Transmission Date: 20190417
  Serious: No
  Sender: FDA-Public Use
  Company Number: US-PFIZER INC-2018535795

PATIENT
  Age: 55 Year
  Sex: Male

DRUGS (2)
  1. CAVERJECT [Suspect]
     Active Substance: ALPROSTADIL
     Indication: ERECTILE DYSFUNCTION
     Dosage: 40 UG, UNK
  2. CAVERJECT [Suspect]
     Active Substance: ALPROSTADIL
     Dosage: 50 IU, 1X/DAY (50 UNITS PRIOR TO COITUS ONCE DAILY; BUT NO MORE THAN 3 TIMES A WK)
     Route: 017
     Dates: start: 20180201, end: 20180522

REACTIONS (2)
  - Pain [Unknown]
  - Painful erection [Recovered/Resolved]
